FAERS Safety Report 9700580 (Version 1)
Quarter: 2013Q4

REPORT INFORMATION
  Report Type: Spontaneous
  Country: IT (occurrence: IT)
  Receive Date: 20131121
  Receipt Date: 20131121
  Transmission Date: 20140711
  Serious: Yes (Hospitalization)
  Sender: FDA-Public Use
  Company Number: PHHY2013IT130906

PATIENT
  Sex: Female

DRUGS (6)
  1. VOLTAREN [Suspect]
     Indication: BACK PAIN
     Dosage: 1 DF, QD
     Route: 030
     Dates: start: 20131026, end: 20131030
  2. BENTELAN [Suspect]
     Indication: BACK PAIN
     Dosage: 1 DF, QD
     Route: 030
     Dates: start: 20131026, end: 20131030
  3. MUSCORIL [Suspect]
     Indication: BACK PAIN
     Dosage: 1 DF, QD
     Route: 030
     Dates: start: 20131026, end: 20131030
  4. SIVASTIN [Concomitant]
     Dosage: UNK UKN, UNK
     Route: 048
  5. LOSAZID [Concomitant]
     Dosage: UNK UKN, UNK
     Route: 048
  6. EUTIROX [Concomitant]
     Dosage: UNK UKN, UNK
     Route: 048

REACTIONS (3)
  - Flank pain [Recovering/Resolving]
  - Haematemesis [Recovering/Resolving]
  - Duodenal ulcer haemorrhage [Recovering/Resolving]
